FAERS Safety Report 7733171-X (Version None)
Quarter: 2011Q3

REPORT INFORMATION
  Report Type: 
  Country: None (occurrence: None)
  Receive Date: 20110902
  Receipt Date: 20110902
  Transmission Date: 20111222
  Serious: Yes (Other)
  Sender: FDA-Public Use
  Company Number: None

PATIENT
  Age: 71 Year
  Sex: Female
  Weight: 63.5036 kg

DRUGS (1)
  1. ANASTROZOLE [Suspect]
     Indication: BREAST CANCER
     Dosage: 1 TABLET (1MG) EVERY AM MOUTH
     Route: 048

REACTIONS (5)
  - HOT FLUSH [None]
  - ARTHRALGIA [None]
  - MOOD ALTERED [None]
  - METRORRHAGIA [None]
  - PAIN [None]
